FAERS Safety Report 25172237 (Version 1)
Quarter: 2025Q2

REPORT INFORMATION
  Report Type: Spontaneous
  Country: US (occurrence: US)
  Receive Date: 20250408
  Receipt Date: 20250408
  Transmission Date: 20250717
  Serious: Yes (Other)
  Sender: BAYER
  Company Number: US-BAYER-2025A043254

PATIENT
  Age: 41 Year
  Sex: Male

DRUGS (1)
  1. CLARITIN-D 24 HOUR [Suspect]
     Active Substance: LORATADINE\PSEUDOEPHEDRINE SULFATE
     Route: 048
     Dates: start: 20250321, end: 20250321

REACTIONS (4)
  - Dizziness [Unknown]
  - Heart rate increased [Recovered/Resolved]
  - Nausea [Unknown]
  - Malaise [Unknown]
